FAERS Safety Report 5188849-1 (Version None)
Quarter: 2006Q4

REPORT INFORMATION
  Report Type: 
  Country: None (occurrence: None)
  Receive Date: 20061221
  Receipt Date: 20061215
  Transmission Date: 20070319
  Serious: Yes (Death)
  Sender: FDA-Public Use
  Company Number: JP-ROXANE LABORATORIES, INC-2006-DE-06707GD

PATIENT
  Sex: Male

DRUGS (1)
  1. MORPHINE [Suspect]

REACTIONS (2)
  - DRUG TOXICITY [None]
  - WRONG DRUG ADMINISTERED [None]
